FAERS Safety Report 5507709-7 (Version None)
Quarter: 2007Q4

REPORT INFORMATION
  Report Type: 
  Country: None (occurrence: None)
  Receive Date: 20071106
  Receipt Date: 20071029
  Transmission Date: 20080405
  Serious: Yes (Hospitalization)
  Sender: FDA-Public Use
  Company Number: B0494128A

PATIENT
  Age: 37 Year
  Sex: Male
  Weight: 97 kg

DRUGS (1)
  1. ZYBAN [Suspect]
     Dosage: 150MG TWICE PER DAY
     Route: 048
     Dates: start: 20070907, end: 20070929

REACTIONS (4)
  - ARTHRALGIA [None]
  - CONJUNCTIVITIS [None]
  - PYREXIA [None]
  - URTICARIA [None]
